FAERS Safety Report 9191620 (Version 1)
Quarter: 2013Q1

REPORT INFORMATION
  Report Type: Other
  Country: JP (occurrence: JP)
  Receive Date: 20130326
  Receipt Date: 20130326
  Transmission Date: 20140127
  Serious: Yes (Death, Other)
  Sender: FDA-Public Use
  Company Number: JP-ACTELION-A-CH2013-81052

PATIENT
  Age: 2 Year
  Sex: Male

DRUGS (4)
  1. TRACLEER [Suspect]
     Indication: PULMONARY ARTERIAL HYPERTENSION
     Dosage: UNK MG, UNK
     Route: 048
  2. WARFARIN [Concomitant]
     Route: 048
  3. SILDENAFIL [Concomitant]
     Route: 048
  4. BERAPROST [Concomitant]
     Route: 048

REACTIONS (9)
  - Pulmonary arterial hypertension [Fatal]
  - Condition aggravated [Fatal]
  - Cardiopulmonary failure [Fatal]
  - Pneumonia [Fatal]
  - Concomitant disease aggravated [Fatal]
  - Cardiac arrest [Fatal]
  - Cerebral ischaemia [Unknown]
  - Hemiparesis [Unknown]
  - Cerebral atrophy [Unknown]
